FAERS Safety Report 16284810 (Version 1)
Quarter: 2019Q2

REPORT INFORMATION
  Report Type: Spontaneous
  Country: US (occurrence: US)
  Receive Date: 20190508
  Receipt Date: 20190508
  Transmission Date: 20190711
  Serious: No
  Sender: FDA-Public Use
  Company Number: US-AUROBINDO-AUR-APL-2019-009144

PATIENT

DRUGS (3)
  1. RISEDRONATE SODIUM TABLET USP 150 MG [Suspect]
     Active Substance: RISEDRONATE SODIUM
     Dosage: 1 TABLET PER MONTH
     Route: 065
     Dates: start: 20190208
  2. RISEDRONATE SODIUM TABLET USP 150 MG [Suspect]
     Active Substance: RISEDRONATE SODIUM
     Indication: OSTEOPOROSIS
     Dosage: 1 TABLET PER MONTH
     Route: 065
     Dates: start: 20190120
  3. VITAMIN D3 [Concomitant]
     Active Substance: CHOLECALCIFEROL
     Route: 065

REACTIONS (2)
  - Abdominal pain upper [Recovered/Resolved]
  - Diarrhoea [Recovered/Resolved]

NARRATIVE: CASE EVENT DATE: 20190209
